FAERS Safety Report 17519874 (Version 1)
Quarter: 2020Q1

REPORT INFORMATION
  Report Type: Spontaneous
  Country: US (occurrence: US)
  Receive Date: 20200310
  Receipt Date: 20200310
  Transmission Date: 20200409
  Serious: Yes (Life-Threatening, Hospitalization, Disabling)
  Sender: FDA-Public Use
  Company Number: None

PATIENT
  Age: 65 Year
  Sex: Female
  Weight: 62.1 kg

DRUGS (7)
  1. IRON 65MG DAILY [Concomitant]
  2. VITAMIN C 50MG [Concomitant]
  3. VITAMIN D3 50MCG [Concomitant]
  4. RINVOQ [Suspect]
     Active Substance: UPADACITINIB
     Indication: RHEUMATOID ARTHRITIS
     Dosage: ?          QUANTITY:1 TABLET(S);?
     Route: 048
     Dates: start: 20200212, end: 20200306
  5. LEVOTHYROXINE 88MCG TABLET [Concomitant]
  6. ELIQUIS [Concomitant]
     Active Substance: APIXABAN
  7. PREDNISONE 10MG TABLET [Concomitant]

REACTIONS (3)
  - Deep vein thrombosis [None]
  - Musculoskeletal discomfort [None]
  - Pulmonary embolism [None]

NARRATIVE: CASE EVENT DATE: 20200306
